FAERS Safety Report 19415456 (Version 1)
Quarter: 2021Q2

REPORT INFORMATION
  Report Type: Spontaneous
  Country: FR (occurrence: FR)
  Receive Date: 20210615
  Receipt Date: 20210615
  Transmission Date: 20210717
  Serious: Yes (Death, Hospitalization, Other)
  Sender: FDA-Public Use
  Company Number: FR-SANOFI-AVENTIS-2013SA016442

PATIENT
  Age: 83 Year
  Sex: Female

DRUGS (2)
  1. FUCIDINE [FUSIDIC ACID] [Suspect]
     Active Substance: FUSIDIC ACID
     Indication: OSTEITIS
     Dosage: 2 DF,QD
     Route: 065
     Dates: start: 20121016, end: 20130204
  2. RIFADINE [Suspect]
     Active Substance: RIFAMPIN
     Indication: OSTEITIS
     Dosage: 1 DF,QD
     Route: 065
     Dates: start: 20121016, end: 20130202

REACTIONS (6)
  - Hepatic failure [Not Recovered/Not Resolved]
  - Cardiac failure [Fatal]
  - Drug-induced liver injury [Not Recovered/Not Resolved]
  - Renal failure [Fatal]
  - Cholestasis [Not Recovered/Not Resolved]
  - Hepatic cytolysis [Not Recovered/Not Resolved]

NARRATIVE: CASE EVENT DATE: 20130130
